FAERS Safety Report 8327670-X (Version None)
Quarter: 2012Q2

REPORT INFORMATION
  Report Type: 
  Country: None (occurrence: None)
  Receive Date: 20120502
  Receipt Date: 20120430
  Transmission Date: 20120825
  Serious: No
  Sender: FDA-Public Use
  Company Number: US-PFIZER INC-2012106370

PATIENT
  Sex: Male
  Weight: 60.771 kg

DRUGS (4)
  1. NEURONTIN [Suspect]
     Indication: OEDEMA PERIPHERAL
  2. NEURONTIN [Suspect]
     Indication: NERVE COMPRESSION
  3. NEURONTIN [Suspect]
     Indication: NEURALGIA
     Dosage: 200 MG, 3X/DAY
     Dates: start: 20120301, end: 20120401
  4. COREG [Concomitant]
     Dosage: 15 MG, 2X/DAY

REACTIONS (1)
  - DRUG INEFFECTIVE [None]
